FAERS Safety Report 12729624 (Version 1)
Quarter: 2016Q3

REPORT INFORMATION
  Report Type: Spontaneous
  Country: US (occurrence: US)
  Receive Date: 20160909
  Receipt Date: 20160909
  Transmission Date: 20161109
  Serious: Yes (Death)
  Sender: FDA-Public Use
  Company Number: US-ASTELLAS-2016US035154

PATIENT
  Age: 63 Year
  Sex: Female

DRUGS (2)
  1. TARCEVA [Suspect]
     Active Substance: ERLOTINIB HYDROCHLORIDE
     Indication: LUNG NEOPLASM MALIGNANT
     Dosage: 150 MG (DOSE INCREASED BY 25 MG EACH WEEK FOR A MAXIMUM DOSE OF 150 MG), ONCE DAILY
     Route: 048
     Dates: start: 20150803
  2. TARCEVA [Suspect]
     Active Substance: ERLOTINIB HYDROCHLORIDE
     Indication: GLIOBLASTOMA
     Dosage: 150 MG (1 TABLET OF 100 MG, 2 TABLETS OF 25 MG) ONCE DAILY
     Route: 048
     Dates: start: 20150731

REACTIONS (2)
  - Rash [Unknown]
  - Death [Fatal]

NARRATIVE: CASE EVENT DATE: 20160906
